FAERS Safety Report 18227675 (Version 3)
Quarter: 2020Q4

REPORT INFORMATION
  Report Type: Report from Study
  Country: IT (occurrence: IT)
  Receive Date: 20200903
  Receipt Date: 20201202
  Transmission Date: 20210113
  Serious: Yes (Hospitalization, Other)
  Sender: FDA-Public Use
  Company Number: IT-GLAXOSMITHKLINE-IT2020173251

PATIENT
  Age: 93 Year
  Sex: Male

DRUGS (5)
  1. PANTOPRAZOLE [Suspect]
     Active Substance: PANTOPRAZOLE
     Indication: DRUG ABUSE
     Dosage: 2 DF, SINGLE (TOTAL)
     Route: 065
     Dates: start: 20200707, end: 20200707
  2. MITTOVAL [Suspect]
     Active Substance: ALFUZOSIN HYDROCHLORIDE
     Indication: DRUG ABUSE
     Dosage: 60 MG, SINGLE(TOTAL)
     Route: 048
     Dates: start: 20200707, end: 20200707
  3. XARELTO [Suspect]
     Active Substance: RIVAROXABAN
     Indication: DRUG ABUSE
     Dosage: 45 MG, SINGLE (TOTAL)
     Route: 065
     Dates: start: 20200707, end: 20200707
  4. DUTASTERIDE. [Suspect]
     Active Substance: DUTASTERIDE
     Indication: DRUG ABUSE
     Dosage: 7.5 MG, SINGLE(TOTAL)
     Route: 065
     Dates: start: 20200707, end: 20200707
  5. OXYBUTYNIN HYDROCHLORIDE [Suspect]
     Active Substance: OXYBUTYNIN CHLORIDE
     Indication: DRUG ABUSE
     Dosage: 45 MG, SINGLE (TOTAL)
     Route: 048
     Dates: start: 20200707, end: 20200707

REACTIONS (3)
  - Intentional overdose [Not Recovered/Not Resolved]
  - Disorganised speech [Not Recovered/Not Resolved]
  - Drug abuse [Not Recovered/Not Resolved]

NARRATIVE: CASE EVENT DATE: 20200707
